FAERS Safety Report 26021590 (Version 1)
Quarter: 2025Q4

REPORT INFORMATION
  Report Type: Other
  Country: UA (occurrence: UA)
  Receive Date: 20251110
  Receipt Date: 20251110
  Transmission Date: 20260118
  Serious: Yes (Other)
  Sender: GLENMARK
  Company Number: UA-GLENMARK PHARMACEUTICALS-2025GMK105355

PATIENT

DRUGS (4)
  1. CLOTRIMAZOLE [Suspect]
     Active Substance: CLOTRIMAZOLE
     Indication: Ill-defined disorder
     Dosage: 1 GRAM, QD (1.0 G ONCE DAILY)
     Route: 061
     Dates: start: 20140508
  2. CEFTRIAXONE [Concomitant]
     Active Substance: CEFTRIAXONE
     Indication: Product used for unknown indication
     Dosage: 250 MILLIGRAM, BID (250 MG TWICE DAILY)
     Route: 030
     Dates: start: 20140504, end: 20140513
  3. AMBROXOL [Concomitant]
     Active Substance: AMBROXOL
     Indication: Product used for unknown indication
     Dosage: 7.5 MILLIGRAM, BID (7,5 MG TWICE DAILY)
     Route: 048
     Dates: start: 20140504, end: 20140513
  4. LACTOBACILLUS REUTERI [Concomitant]
     Active Substance: LACTOBACILLUS REUTERI
     Indication: Product used for unknown indication
     Dosage: 5 DOSAGE FORM, BID (5 DROPS MG TWICE DAILY )
     Route: 048
     Dates: start: 20140504, end: 20140513

REACTIONS (1)
  - Rash [Recovered/Resolved]

NARRATIVE: CASE EVENT DATE: 20140508
